FAERS Safety Report 9807340 (Version 2)
Quarter: 2014Q1

REPORT INFORMATION
  Report Type: Spontaneous
  Country: SE (occurrence: SE)
  Receive Date: 20140110
  Receipt Date: 20140321
  Transmission Date: 20141002
  Serious: Yes (Other)
  Sender: FDA-Public Use
  Company Number: SE-009507513-1401SWE003137

PATIENT
  Age: 39 Year
  Sex: Female

DRUGS (2)
  1. TRYPTIZOL [Suspect]
     Indication: NECK PAIN
     Dosage: 10 MG, QD AT NIGHT
     Route: 048
     Dates: start: 20120903, end: 20121002
  2. KALCIPOS D [Concomitant]

REACTIONS (1)
  - Alopecia totalis [Not Recovered/Not Resolved]
